FAERS Safety Report 8347363-2 (Version None)
Quarter: 2012Q2

REPORT INFORMATION
  Report Type: 
  Country: None (occurrence: None)
  Receive Date: 20120509
  Receipt Date: 20120425
  Transmission Date: 20120825
  Serious: Yes (Hospitalization)
  Sender: FDA-Public Use
  Company Number: US-ROCHE-1008626

PATIENT
  Sex: Male

DRUGS (12)
  1. WARFARIN SODIUM [Suspect]
     Indication: RENAL TRANSPLANT
  2. PERCOCET [Concomitant]
  3. PREDNISONE TAB [Suspect]
     Indication: RENAL TRANSPLANT
     Dates: start: 20090123
  4. CLONIDINE HCL [Concomitant]
  5. LIPITOR [Concomitant]
  6. KLOR-CON [Concomitant]
  7. FUROSEMIDE [Concomitant]
     Dates: start: 20110711
  8. CYCLOSPORINE [Suspect]
     Indication: RENAL TRANSPLANT
     Dates: start: 20110218
  9. MYCOPHENOLATE MOFETIL (CELLCEPT) [Suspect]
     Indication: RENAL TRANSPLANT
     Dates: start: 20070723
  10. METOPROLOL SUCCINATE [Concomitant]
  11. ISOSORBIDE MONONITRATE [Concomitant]
  12. HYDRALAZINE HCL [Concomitant]

REACTIONS (8)
  - MUSCLE HAEMORRHAGE [None]
  - BLADDER TRANSITIONAL CELL CARCINOMA [None]
  - VASCULITIS [None]
  - CARDIAC FAILURE CONGESTIVE [None]
  - PNEUMONIA [None]
  - PYELONEPHRITIS [None]
  - ISCHAEMIC STROKE [None]
  - CHEST PAIN [None]
